FAERS Safety Report 5474877-5 (Version None)
Quarter: 2007Q4

REPORT INFORMATION
  Report Type: 
  Country: None (occurrence: None)
  Receive Date: 20071002
  Receipt Date: 20070921
  Transmission Date: 20080405
  Serious: Yes (Other)
  Sender: FDA-Public Use
  Company Number: GB-ROCHE-521018

PATIENT
  Sex: Female
  Weight: 71.4 kg

DRUGS (10)
  1. ORLISTAT [Suspect]
     Indication: OBESITY
     Route: 048
     Dates: start: 20070419, end: 20070825
  2. OXPRENOLOL [Concomitant]
     Dosage: DRUG REPORTED AS OXYPRENALOL.
     Route: 048
     Dates: end: 20070825
  3. ESCITALOPRAM [Concomitant]
     Route: 048
  4. CETIRIZINE HCL [Concomitant]
     Route: 048
  5. PERINDOPRIL ERBUMINE [Concomitant]
     Dosage: DRUG REPORTED AS PREINDOPRIL.
     Route: 048
     Dates: end: 20070825
  6. HRT [Concomitant]
     Indication: MENOPAUSE
     Dates: end: 20070825
  7. IBUPROFEN [Concomitant]
     Route: 048
  8. SIMVASTIN [Concomitant]
     Route: 048
  9. CODEINE PHOSPHATE [Concomitant]
     Indication: PAIN
     Dosage: DRUG REPORTED AS CODINE PHOSPHATE.
     Route: 048
  10. QUININE [Concomitant]
     Route: 048

REACTIONS (1)
  - BREAST CANCER [None]
